FAERS Safety Report 16159005 (Version 1)
Quarter: 2019Q2

REPORT INFORMATION
  Report Type: Spontaneous
  Country: CR (occurrence: CR)
  Receive Date: 20190404
  Receipt Date: 20190404
  Transmission Date: 20190711
  Serious: Yes (Death, Other)
  Sender: FDA-Public Use
  Company Number: CR-BAYER-2019-064439

PATIENT
  Sex: Male

DRUGS (1)
  1. STIVARGA [Suspect]
     Active Substance: REGORAFENIB
     Dosage: 160 MG, UNK
     Dates: start: 2019, end: 2019

REACTIONS (2)
  - Death [Fatal]
  - Hypersomnia [None]

NARRATIVE: CASE EVENT DATE: 20190328
